FAERS Safety Report 6258849-9 (Version None)
Quarter: 2009Q3

REPORT INFORMATION
  Report Type: 
  Country: None (occurrence: None)
  Receive Date: 20090702
  Receipt Date: 20090619
  Transmission Date: 20100115
  Serious: Yes (Hospitalization)
  Sender: FDA-Public Use
  Company Number: 2009AL003193

PATIENT
  Age: 75 Year
  Sex: Female
  Weight: 49.4421 kg

DRUGS (14)
  1. DIGOXIN [Suspect]
     Indication: CARDIAC DISORDER
     Dosage: 0.125MG, DALY,PO
     Route: 048
     Dates: start: 19900101, end: 20080601
  2. ATENOLOL [Concomitant]
  3. ZETIA [Concomitant]
  4. MAGNESIUM SULFATE [Concomitant]
  5. DILTIAZEM [Concomitant]
  6. ALAVERT [Concomitant]
  7. PRAVASTATIN [Concomitant]
  8. COUMADIN [Concomitant]
  9. CARTIA XT [Concomitant]
  10. CALCIUM [Concomitant]
  11. ASPIRIN [Concomitant]
  12. TYLENOL (CAPLET) [Concomitant]
  13. INDOCIN [Concomitant]
  14. DIOVAN [Concomitant]

REACTIONS (13)
  - ANXIETY [None]
  - ATRIAL FIBRILLATION [None]
  - BRADYCARDIA [None]
  - DECREASED APPETITE [None]
  - EMOTIONAL DISORDER [None]
  - INJURY [None]
  - MALAISE [None]
  - PALPITATIONS [None]
  - SINUS BRADYCARDIA [None]
  - STRESS [None]
  - SYNCOPE [None]
  - TACHYCARDIA [None]
  - THERAPEUTIC AGENT TOXICITY [None]
